FAERS Safety Report 10409786 (Version 1)
Quarter: 2014Q3

REPORT INFORMATION
  Report Type: Spontaneous
  Country: US (occurrence: None)
  Receive Date: 20140825
  Receipt Date: 20140825
  Transmission Date: 20150326
  Serious: Yes (Disabling)
  Sender: FDA-Public Use
  Company Number: None

PATIENT
  Age: 50 Year
  Sex: Female
  Weight: 68.04 kg

DRUGS (2)
  1. PROLIA [Suspect]
     Active Substance: DENOSUMAB
     Dosage: 60 MG EVERY 6 MONTHS  INTO A VEIN
     Route: 042
     Dates: start: 20140721
  2. PROLIA [Suspect]
     Active Substance: DENOSUMAB
     Indication: OSTEOPOROSIS
     Dosage: 60 MG EVERY 6 MONTHS  INTO A VEIN
     Route: 042
     Dates: start: 20140721

REACTIONS (2)
  - Back pain [None]
  - Drug ineffective [None]

NARRATIVE: CASE EVENT DATE: 20140721
